FAERS Safety Report 21760324 (Version 1)
Quarter: 2022Q4

REPORT INFORMATION
  Report Type: Other
  Country: GB (occurrence: GB)
  Receive Date: 20221221
  Receipt Date: 20221221
  Transmission Date: 20230113
  Serious: Yes (Disabling)
  Sender: FDA-Public Use
  Company Number: GB-MHRA-MED-202212091552319240-KCHRP

PATIENT

DRUGS (2)
  1. GABAPENTIN [Suspect]
     Active Substance: GABAPENTIN
     Indication: Neuralgia
     Dosage: 800 MG TWICE A DAY THIS TIME, BEFORE 1600 MG TWICE A DAY. STOPPED AROUND FEBRUARY 2022, RESTARTED
     Route: 065
     Dates: end: 202202
  2. GABAPENTIN [Suspect]
     Active Substance: GABAPENTIN
     Dosage: 800 MILLIGRAM, BID (800MG TWICE A DAY THIS TIME, BEFORE 1600 MG TWICE A DAY.  STOPPED AROUND FEBRUAR
     Route: 065
     Dates: end: 20221208

REACTIONS (2)
  - Mood swings [Recovering/Resolving]
  - Agitated depression [Unknown]
